FAERS Safety Report 9169054 (Version 1)
Quarter: 2013Q1

REPORT INFORMATION
  Report Type: Spontaneous
  Country: US (occurrence: None)
  Receive Date: 20130314
  Receipt Date: 20130314
  Transmission Date: 20140127
  Serious: No
  Sender: FDA-Public Use
  Company Number: None

PATIENT
  Age: 40 Year
  Sex: Male

DRUGS (2)
  1. DOXYLAMINE SUCCINATE [Suspect]
  2. UNSPECIFIED INGREDIENTS [Suspect]

REACTIONS (3)
  - Product label issue [None]
  - Product label confusion [None]
  - Product packaging issue [None]
